FAERS Safety Report 6793293-7 (Version None)
Quarter: 2010Q2

REPORT INFORMATION
  Report Type: 
  Country: None (occurrence: None)
  Receive Date: 20100624
  Receipt Date: 20091117
  Transmission Date: 20101027
  Serious: Yes (Death)
  Sender: FDA-Public Use
  Company Number: US-MYLANLABS-2009S1019086

PATIENT
  Age: 57 Year
  Sex: Male

DRUGS (11)
  1. CLOZAPINE [Suspect]
     Route: 048
  2. CLOZAPINE [Suspect]
     Route: 048
  3. CIPRO [Concomitant]
  4. PROMETHAZINE [Concomitant]
     Route: 030
  5. FLUPHENAZINE [Concomitant]
  6. VITAMIN B [Concomitant]
  7. COGENTIN [Concomitant]
  8. PLAVIX [Concomitant]
  9. DEPAKOTE [Concomitant]
  10. LORATADINE [Concomitant]
  11. FLUARIX /00027001/ [Concomitant]

REACTIONS (1)
  - CEREBROVASCULAR DISORDER [None]
